FAERS Safety Report 6746740-0 (Version None)
Quarter: 2010Q2

REPORT INFORMATION
  Report Type: 
  Country: None (occurrence: None)
  Receive Date: 20100528
  Receipt Date: 20090626
  Transmission Date: 20101027
  Serious: No
  Sender: FDA-Public Use
  Company Number: A0793987A

PATIENT
  Sex: Female

DRUGS (1)
  1. VENTOLIN [Suspect]
     Indication: DRUG USE FOR UNKNOWN INDICATION
     Route: 055

REACTIONS (4)
  - CANDIDIASIS [None]
  - ORAL PAIN [None]
  - RASH [None]
  - THROAT TIGHTNESS [None]
